FAERS Safety Report 12827238 (Version 1)
Quarter: 2016Q4

REPORT INFORMATION
  Report Type: Spontaneous
  Country: US (occurrence: US)
  Receive Date: 20161006
  Receipt Date: 20161006
  Transmission Date: 20170207
  Serious: No
  Sender: FDA-Public Use
  Company Number: US-INDIVIOR LIMITED-INDV-089837-2016

PATIENT
  Age: 42 Year
  Sex: Male

DRUGS (1)
  1. SUBOXONE [Suspect]
     Active Substance: BUPRENORPHINE HYDROCHLORIDE\NALOXONE HYDROCHLORIDE
     Indication: DRUG DEPENDENCE
     Dosage: TOOK LESS THAN 1/4 OF THE FILM BY CUTTING, ONCE
     Route: 060
     Dates: start: 20160412, end: 20160412

REACTIONS (4)
  - Feeling abnormal [Recovered/Resolved]
  - Intentional underdose [Recovered/Resolved]
  - Poor quality sleep [Recovered/Resolved]
  - Product preparation error [Recovered/Resolved]

NARRATIVE: CASE EVENT DATE: 20160412
